FAERS Safety Report 9481681 (Version 2)
Quarter: 2013Q3

REPORT INFORMATION
  Report Type: Spontaneous
  Country: CA (occurrence: CA)
  Receive Date: 20130828
  Receipt Date: 20130828
  Transmission Date: 20140515
  Serious: Yes (Death)
  Sender: FDA-Public Use
  Company Number: CA-AMGEN-KDL213249

PATIENT
  Age: 64 Year
  Sex: Male

DRUGS (2)
  1. ENBREL [Suspect]
     Indication: RHEUMATOID ARTHRITIS
     Dosage: 25 MG, 2 TIMES/WK
     Route: 058
     Dates: start: 20010921, end: 2003
  2. METHOTREXATE [Concomitant]

REACTIONS (4)
  - Death [Fatal]
  - Septic shock [Unknown]
  - Lung infection [Unknown]
  - Staphylococcal sepsis [Unknown]
